FAERS Safety Report 6966915-5 (Version None)
Quarter: 2010Q3

REPORT INFORMATION
  Report Type: 
  Country: None (occurrence: None)
  Receive Date: 20100906
  Receipt Date: 20100901
  Transmission Date: 20110219
  Serious: Yes (Death)
  Sender: FDA-Public Use
  Company Number: PHHY2010MX57778

PATIENT
  Age: 62 Year
  Sex: Female

DRUGS (2)
  1. EXJADE [Suspect]
     Indication: IRON OVERLOAD
     Dosage: 2 DF, QD
     Route: 048
  2. BI-EUGLUCON [Concomitant]
     Indication: DIABETES MELLITUS
     Dosage: 1/2 TABLET DAILY
     Route: 048

REACTIONS (1)
  - CARDIAC FAILURE [None]
